FAERS Safety Report 6739190-4 (Version None)
Quarter: 2010Q2

REPORT INFORMATION
  Report Type: 
  Country: None (occurrence: None)
  Receive Date: 20100525
  Receipt Date: 20100310
  Transmission Date: 20101027
  Serious: No
  Sender: FDA-Public Use
  Company Number: A0849497A

PATIENT
  Age: 61 Year
  Sex: Female

DRUGS (4)
  1. VERAMYST [Suspect]
     Dosage: 1SPR TWICE PER DAY
     Route: 045
     Dates: start: 20100217
  2. SYNTHROID [Concomitant]
  3. LEXAPRO [Concomitant]
  4. XANAX [Concomitant]

REACTIONS (2)
  - EPISTAXIS [None]
  - OROPHARYNGEAL PAIN [None]
